FAERS Safety Report 20244542 (Version 1)
Quarter: 2021Q4

REPORT INFORMATION
  Report Type: Spontaneous
  Country: CN (occurrence: None)
  Receive Date: 20211229
  Receipt Date: 20211229
  Transmission Date: 20220303
  Serious: Yes (Other)
  Sender: FDA-Public Use
  Company Number: CN-ROCHE-2984626

PATIENT
  Sex: Female
  Weight: 55 kg

DRUGS (4)
  1. PERJETA [Suspect]
     Active Substance: PERTUZUMAB
     Indication: Invasive breast carcinoma
     Route: 041
     Dates: start: 20211119
  2. HERCEPTIN [Suspect]
     Active Substance: TRASTUZUMAB
     Indication: Invasive breast carcinoma
     Route: 041
     Dates: start: 20211119
  3. CARBOPLATIN [Suspect]
     Active Substance: CARBOPLATIN
     Indication: Invasive breast carcinoma
     Route: 041
     Dates: start: 20211120
  4. DOCETAXEL [Suspect]
     Active Substance: DOCETAXEL
     Indication: Invasive breast carcinoma
     Route: 041
     Dates: start: 20211120

REACTIONS (1)
  - Myelosuppression [Unknown]
